FAERS Safety Report 6635335-5 (Version None)
Quarter: 2010Q1

REPORT INFORMATION
  Report Type: 
  Country: None (occurrence: None)
  Receive Date: 20100315
  Receipt Date: 20100309
  Transmission Date: 20100710
  Serious: Yes (Life-Threatening, Hospitalization)
  Sender: FDA-Public Use
  Company Number: NZ-SANOFI-AVENTIS-2010SA013672

PATIENT
  Age: 65 Year
  Sex: Male

DRUGS (3)
  1. OXALIPLATIN [Suspect]
     Route: 041
     Dates: start: 20091109
  2. XELODA [Suspect]
     Route: 048
     Dates: start: 20091109, end: 20091123
  3. LACTULOSE [Concomitant]
     Indication: CONSTIPATION
     Route: 065

REACTIONS (5)
  - ANGINA UNSTABLE [None]
  - ARTERIOSPASM CORONARY [None]
  - CORONARY ARTERY STENOSIS [None]
  - ELECTROCARDIOGRAM ST SEGMENT ELEVATION [None]
  - RECTAL HAEMORRHAGE [None]
